FAERS Safety Report 5222857-7 (Version None)
Quarter: 2007Q1

REPORT INFORMATION
  Report Type: 
  Country: None (occurrence: None)
  Receive Date: 20070129
  Receipt Date: 20070123
  Transmission Date: 20070707
  Serious: Yes (Other)
  Sender: FDA-Public Use
  Company Number: NL-GLAXOSMITHKLINE-B0456046A

PATIENT
  Sex: Female

DRUGS (1)
  1. LAMICTAL [Suspect]
     Indication: MOOD SWINGS
     Dosage: 250MG PER DAY
     Route: 048

REACTIONS (3)
  - CONSCIOUSNESS FLUCTUATING [None]
  - DEPRESSED LEVEL OF CONSCIOUSNESS [None]
  - FALL [None]
